FAERS Safety Report 7508861-4 (Version None)
Quarter: 2011Q2

REPORT INFORMATION
  Report Type: 
  Country: None (occurrence: None)
  Receive Date: 20110527
  Receipt Date: 20090930
  Transmission Date: 20111010
  Serious: Yes (Other)
  Sender: FDA-Public Use
  Company Number: US-BAYER-200934417NA

PATIENT
  Age: 68 Year
  Sex: Female
  Weight: 88 kg

DRUGS (30)
  1. FUROSEMIDE [Concomitant]
     Dosage: 40 MG, QD, LONG TERM
     Route: 048
  2. BENAZEPRIL HYDROCHLORIDE [Concomitant]
     Dosage: 40 MG, QD, LONG TERM
  3. VYTORIN [Concomitant]
     Dosage: 40 MG, QD, LONG TERM
     Route: 048
  4. ACETYLSALICYLIC ACID SRT [Concomitant]
     Dosage: 81 MG, QD
     Route: 048
  5. CYCLOBENZAPRINE [Concomitant]
     Dosage: 10 MG, QD, LONG TERM
     Route: 048
  6. LORAZEPAM [Concomitant]
     Dosage: 0.5 MG, BID, LONG TERM
     Route: 048
  7. PROSTIGMIN BROMIDE [Concomitant]
     Dosage: 3-0.6 MG
     Route: 042
     Dates: start: 20050902, end: 20050902
  8. NAPROXEN SODIUM [Concomitant]
     Dosage: 500 MG, BID, LONG TERM
     Route: 048
     Dates: start: 20050902
  9. PROTAMINE SULFATE [Concomitant]
     Dosage: 310 MG, UNK
     Route: 042
     Dates: start: 20050902, end: 20050902
  10. FENTANYL [Concomitant]
     Dosage: 3 MG, UNK
     Route: 042
     Dates: start: 20050902, end: 20050902
  11. ETOMIDATE [Concomitant]
     Dosage: 14MICROGRAMS/KG
     Route: 042
     Dates: start: 20050902, end: 20050902
  12. TRASYLOL [Suspect]
     Indication: AORTIC VALVE REPLACEMENT
     Dosage: 200 ML, CARDIOPULMONARY BYPASS PRIME
     Route: 042
     Dates: start: 20050902, end: 20050902
  13. TRASYLOL [Suspect]
     Dosage: 200 ML, UNK
     Route: 042
     Dates: start: 20050902, end: 20050902
  14. TRASYLOL [Suspect]
     Dosage: 50CC/HOUR, INFUSION
     Route: 042
     Dates: start: 20050902, end: 20050902
  15. METFORMIN HCL [Concomitant]
     Dosage: 1000 MG, BID, LONG TERM
     Route: 048
  16. SUFENTANIL CITRATE [Concomitant]
     Dosage: 7 MG/KG
     Route: 042
     Dates: start: 20050902, end: 20050902
  17. HEPARIN [Concomitant]
     Dosage: 20000 U, UNK
     Route: 042
     Dates: start: 20050902, end: 20050902
  18. RED BLOOD CELLS [Concomitant]
     Dosage: 2 U, UNK
     Route: 042
     Dates: start: 20050902
  19. GLIPIZIDE [Concomitant]
     Dosage: 5 MG, BID, LONG TERM
     Route: 048
  20. BENICAR [Concomitant]
     Dosage: 40 MG, UNK
     Route: 048
  21. METOPROLOL TARTRATE [Concomitant]
     Dosage: 50 MG, BID, LONG TERM
     Route: 048
  22. INSULIN [Concomitant]
     Dosage: 20 U, UNK
     Route: 042
     Dates: start: 20050902, end: 20050902
  23. FLUOXETINE [Concomitant]
     Dosage: 40 MG, QD
     Route: 048
  24. SPIRIVA [Concomitant]
     Dosage: 2 PUFFS, INHALED, LONG TERM
  25. PANCURONIUM BROMIDE [Concomitant]
     Dosage: 8 ?G, UNK
     Route: 042
     Dates: start: 20050902, end: 20050902
  26. POTASSIUM CHLORIDE [Concomitant]
     Dosage: 40 MILLIEQUIVILANT
     Route: 042
     Dates: start: 20050902, end: 20050902
  27. CEFAZOLIN [Concomitant]
     Dosage: 2 G, UNK
     Route: 042
     Dates: start: 20050902, end: 20050902
  28. NORVASC [Concomitant]
     Dosage: 5 MG, QD
     Route: 048
  29. VERSED [Concomitant]
     Dosage: 2 G, UNK
     Route: 042
     Dates: start: 20050902, end: 20050902
  30. PRECEDEX [Concomitant]
     Dosage: 4CC/HOUR, UNK
     Route: 042
     Dates: start: 20050902, end: 20050902

REACTIONS (11)
  - UNEVALUABLE EVENT [None]
  - DEPRESSION [None]
  - RENAL IMPAIRMENT [None]
  - INJURY [None]
  - ANXIETY [None]
  - PAIN [None]
  - EMOTIONAL DISTRESS [None]
  - RENAL INJURY [None]
  - RENAL FAILURE [None]
  - STRESS [None]
  - FEAR [None]
